FAERS Safety Report 5315518-7 (Version None)
Quarter: 2007Q2

REPORT INFORMATION
  Report Type: 
  Country: None (occurrence: None)
  Receive Date: 20070501
  Receipt Date: 20070501
  Transmission Date: 20071010
  Serious: Yes (Other)
  Sender: FDA-Public Use
  Company Number: None

PATIENT
  Sex: Female
  Weight: 53.5244 kg

DRUGS (1)
  1. ACCUTANE [Suspect]
     Indication: ACNE

REACTIONS (4)
  - ACNE CYSTIC [None]
  - CONDITION AGGRAVATED [None]
  - LIVER DISORDER [None]
  - UTERINE CERVIX HYPOPLASIA [None]
